FAERS Safety Report 4537247-X (Version None)
Quarter: 2004Q4

REPORT INFORMATION
  Report Type: 
  Country: None (occurrence: None)
  Receive Date: 20041223
  Receipt Date: 20041124
  Transmission Date: 20050328
  Serious: Yes (Life-Threatening, Hospitalization, Other)
  Sender: FDA-Public Use
  Company Number: PHEH2004US12742

PATIENT
  Age: 46 Year
  Sex: Male

DRUGS (3)
  1. CLOZARIL [Suspect]
     Indication: SCHIZOAFFECTIVE DISORDER
     Dosage: 450 MG, QD
     Route: 048
  2. ATIVAN [Concomitant]
  3. TOPAMAX [Concomitant]

REACTIONS (6)
  - CARDIAC ARREST [None]
  - CARDIAC PACEMAKER MALFUNCTION [None]
  - CARDIOMYOPATHY [None]
  - HYPERSENSITIVITY [None]
  - MYOCARDITIS [None]
  - VENTRICULAR FIBRILLATION [None]
